FAERS Safety Report 6299145-3 (Version None)
Quarter: 2009Q3

REPORT INFORMATION
  Report Type: 
  Country: None (occurrence: None)
  Receive Date: 20090806
  Receipt Date: 20090730
  Transmission Date: 20100115
  Serious: Yes (Life-Threatening, Hospitalization, Other)
  Sender: FDA-Public Use
  Company Number: FR-CELGENEUS-056-C5013-09070517

PATIENT
  Sex: Female
  Weight: 75 kg

DRUGS (19)
  1. CC-5013 [Suspect]
     Indication: MULTIPLE MYELOMA
     Route: 048
     Dates: start: 20090218
  2. CC-5013 [Suspect]
     Route: 048
     Dates: start: 20090611, end: 20090701
  3. DEXAMETHASONE [Suspect]
     Indication: MULTIPLE MYELOMA
     Route: 048
     Dates: start: 20090218
  4. DEXAMETHASONE [Suspect]
     Route: 048
     Dates: start: 20090611, end: 20090702
  5. PANTOPRAZOLE SODIUM [Concomitant]
     Indication: PROPHYLAXIS
     Route: 048
     Dates: start: 20090218, end: 20090419
  6. ZELITREX [Concomitant]
     Indication: INFECTION PROPHYLAXIS
     Route: 048
     Dates: start: 20080218
  7. BACTRIM DS [Concomitant]
     Indication: PROPHYLAXIS
     Route: 048
     Dates: start: 20090218
  8. BACTRIM DS [Concomitant]
     Route: 048
     Dates: start: 20090416
  9. SPECIAFOLDINE [Concomitant]
     Indication: INFECTION PROPHYLAXIS
     Route: 048
     Dates: start: 20090218
  10. ASPEGIC 1000 [Concomitant]
     Indication: THROMBOSIS PROPHYLAXIS
     Route: 048
     Dates: start: 20080218, end: 20090708
  11. ENDOTELON [Concomitant]
     Indication: VENOUS INSUFFICIENCY
     Route: 048
     Dates: start: 19920101
  12. ENDOTELON [Concomitant]
     Route: 048
     Dates: start: 20090416, end: 20090708
  13. ART [Concomitant]
     Route: 048
     Dates: start: 19990101, end: 20090708
  14. LEXOMIL [Concomitant]
     Route: 048
     Dates: start: 20081101, end: 20090708
  15. ATENOLOL [Concomitant]
     Route: 048
     Dates: start: 20070101, end: 20090709
  16. ATENOLOL [Concomitant]
     Route: 048
     Dates: start: 20090709
  17. MOPRAL [Concomitant]
     Indication: PROPHYLAXIS
     Route: 048
     Dates: start: 20090101
  18. TENORDATE [Concomitant]
     Route: 048
     Dates: start: 20070101, end: 20090708
  19. ACID FOLIC [Concomitant]
     Indication: INFECTION PROPHYLAXIS
     Route: 048
     Dates: start: 20090416, end: 20090708

REACTIONS (2)
  - DEEP VEIN THROMBOSIS [None]
  - PULMONARY EMBOLISM [None]
